FAERS Safety Report 5393071-X (Version None)
Quarter: 2007Q3

REPORT INFORMATION
  Report Type: 
  Country: None (occurrence: None)
  Receive Date: 20070719
  Receipt Date: 20070706
  Transmission Date: 20080115
  Serious: Yes (Other)
  Sender: FDA-Public Use
  Company Number: 100#03#2007-02612

PATIENT
  Sex: Female

DRUGS (5)
  1. SERTRALINE [Suspect]
     Indication: OBSESSIVE-COMPULSIVE DISORDER
     Dosage: 125 MG DAY; ORAL
     Route: 048
     Dates: start: 20060101
  2. DIAZEPAM [Concomitant]
  3. DIHYDROCODEINE (DIHYDROCODEINE) (DIHYDROCODEINE) [Concomitant]
  4. LOPRAMIDE (LOPERAMIDE) (LOPERAMIDE) [Concomitant]
  5. OMEPRAZOLE [Concomitant]

REACTIONS (3)
  - CHOLELITHIASIS [None]
  - HEPATIC STEATOSIS [None]
  - HERPES ZOSTER [None]
